FAERS Safety Report 6774477-0 (Version None)
Quarter: 2010Q2

REPORT INFORMATION
  Report Type: 
  Country: None (occurrence: None)
  Receive Date: 20100617
  Receipt Date: 20100604
  Transmission Date: 20101027
  Serious: Yes (Hospitalization)
  Sender: FDA-Public Use
  Company Number: PHHY2010FR37355

PATIENT
  Age: 63 Year
  Sex: Male

DRUGS (3)
  1. RASILEZ [Suspect]
     Dosage: 150 MG, UNK
  2. TENORMIN [Concomitant]
     Dosage: 50 MG, UNK
  3. TRIATEC [Concomitant]
     Dosage: 10 MG, UNK

REACTIONS (1)
  - EXTRASYSTOLES [None]
